FAERS Safety Report 6854683-7 (Version None)
Quarter: 2010Q3

REPORT INFORMATION
  Report Type: 
  Country: None (occurrence: None)
  Receive Date: 20100717
  Receipt Date: 20080110
  Transmission Date: 20110219
  Serious: No
  Sender: FDA-Public Use
  Company Number: US-PFIZER INC-2008004589

PATIENT
  Age: 34 Year
  Sex: Female
  Weight: 70.5 kg

DRUGS (2)
  1. CHANTIX [Suspect]
     Indication: SMOKING CESSATION THERAPY
     Dates: start: 20080102
  2. NORLESTRIN FE [Concomitant]
     Indication: CONTRACEPTION

REACTIONS (1)
  - VISUAL IMPAIRMENT [None]
